FAERS Safety Report 6814947-X (Version None)
Quarter: 2010Q3

REPORT INFORMATION
  Report Type: 
  Country: None (occurrence: None)
  Receive Date: 20100702
  Receipt Date: 20100622
  Transmission Date: 20110219
  Serious: Yes (Hospitalization)
  Sender: FDA-Public Use
  Company Number: DE-ROCHE-712281

PATIENT
  Sex: Female
  Weight: 73 kg

DRUGS (5)
  1. TOCILIZUMAB [Suspect]
     Indication: RHEUMATOID ARTHRITIS
     Route: 042
     Dates: start: 20091201, end: 20100203
  2. PREDNISOLON [Concomitant]
     Indication: RHEUMATOID ARTHRITIS
  3. ERYFER COMP. [Concomitant]
  4. THIAMAZOL [Concomitant]
  5. MELOXICAM [Concomitant]

REACTIONS (2)
  - ARTHRITIS [None]
  - RHEUMATOID ARTHRITIS [None]
